FAERS Safety Report 16519595 (Version 4)
Quarter: 2019Q4

REPORT INFORMATION
  Report Type: Spontaneous
  Country: US (occurrence: US)
  Receive Date: 20190702
  Receipt Date: 20191024
  Transmission Date: 20200122
  Serious: Yes (Other)
  Sender: FDA-Public Use
  Company Number: US-PFIZER INC-2014321882

PATIENT
  Age: 68 Year
  Sex: Female
  Weight: 57.6 kg

DRUGS (2)
  1. REVATIO [Suspect]
     Active Substance: SILDENAFIL CITRATE
     Indication: CHRONIC OBSTRUCTIVE PULMONARY DISEASE
     Dosage: 80 MG, 3X/DAY (20 MG TABLET, 4 TABLETS THREE TIMES A DAY)
     Dates: start: 2010
  2. REVATIO [Suspect]
     Active Substance: SILDENAFIL CITRATE
     Indication: PULMONARY HYPERTENSION
     Dosage: UNK
     Dates: start: 2009

REACTIONS (3)
  - Off label use [Unknown]
  - Dementia [Unknown]
  - Product use issue [Unknown]

NARRATIVE: CASE EVENT DATE: 2010
